FAERS Safety Report 6774289-8 (Version None)
Quarter: 2010Q2

REPORT INFORMATION
  Report Type: 
  Country: None (occurrence: None)
  Receive Date: 20100617
  Receipt Date: 20100608
  Transmission Date: 20101027
  Serious: Yes (Other)
  Sender: FDA-Public Use
  Company Number: CN-PFIZER INC-2010058217

PATIENT
  Age: 16 Year

DRUGS (3)
  1. ZOLOFT [Suspect]
     Indication: DEPRESSION
     Dosage: 50 MG, 1X/DAY
     Route: 048
  2. ZOLOFT [Suspect]
     Dosage: 75 MG, 1X/DAY
     Route: 048
  3. ZOLOFT [Suspect]
     Dosage: 100 MG, 1X/DAY
     Route: 048

REACTIONS (1)
  - BIPOLAR DISORDER [None]
